FAERS Safety Report 6655209-3 (Version None)
Quarter: 2010Q1

REPORT INFORMATION
  Report Type: 
  Country: None (occurrence: None)
  Receive Date: 20100329
  Receipt Date: 20100319
  Transmission Date: 20100710
  Serious: Yes (Other)
  Sender: FDA-Public Use
  Company Number: US-SANOFI-AVENTIS-2010SA014898

PATIENT
  Age: 67 Year
  Sex: Female

DRUGS (2)
  1. AMBIEN CR [Suspect]
     Indication: SLEEP DISORDER
     Route: 048
     Dates: start: 20100104, end: 20100305
  2. ALL OTHER THERAPEUTIC PRODUCTS [Concomitant]

REACTIONS (7)
  - AMNESIA [None]
  - CONCUSSION [None]
  - FALL [None]
  - OPEN WOUND [None]
  - PAIN [None]
  - SOMNAMBULISM [None]
  - UPPER LIMB FRACTURE [None]
